FAERS Safety Report 18806020 (Version 4)
Quarter: 2022Q1

REPORT INFORMATION
  Report Type: Report from Study
  Country: JP (occurrence: JP)
  Receive Date: 20210129
  Receipt Date: 20220119
  Transmission Date: 20220423
  Serious: Yes (Hospitalization, Other)
  Sender: FDA-Public Use
  Company Number: JP-ALXN-A202013366

PATIENT
  Age: 0 Year
  Sex: Female
  Weight: 5.7 kg

DRUGS (4)
  1. KANUMA [Suspect]
     Active Substance: SEBELIPASE ALFA
     Dosage: 3 MG/KG, QW
     Route: 042
  2. KANUMA [Suspect]
     Active Substance: SEBELIPASE ALFA
     Indication: Lysosomal acid lipase deficiency
     Dosage: 3 MG/KG, QW
     Route: 042
     Dates: start: 20200904
  3. SODIUM CHLORIDE [Suspect]
     Active Substance: SODIUM CHLORIDE
     Indication: Lysosomal acid lipase deficiency
     Dosage: 55 ML, QD
     Route: 042
     Dates: start: 20201126
  4. INCREMIN                           /00023544/ [Concomitant]
     Indication: Lysosomal acid lipase deficiency
     Dosage: 0.5 ML, TID
     Route: 065
     Dates: start: 20200626, end: 20200910

REACTIONS (24)
  - C-reactive protein increased [Recovered/Resolved]
  - Decreased appetite [Recovered/Resolved]
  - Infection [Unknown]
  - Febrile convulsion [Recovered/Resolved]
  - Cytokine storm [Recovered/Resolved]
  - Urinary tract infection [Recovered/Resolved]
  - Injection site swelling [Recovered/Resolved]
  - Low density lipoprotein increased [Recovered/Resolved]
  - Alanine aminotransferase increased [Recovered/Resolved]
  - Aspartate aminotransferase increased [Recovered/Resolved]
  - Hypo HDL cholesterolaemia [Not Recovered/Not Resolved]
  - Injection site extravasation [Recovered/Resolved]
  - Injection site erythema [Unknown]
  - Polycythaemia [Recovered/Resolved]
  - Erythema [Recovered/Resolved]
  - Skin disorder [Recovered/Resolved]
  - Short stature [Not Recovered/Not Resolved]
  - Bronchitis [Recovered/Resolved]
  - Exanthema subitum [Recovered/Resolved]
  - Gastroenteritis [Recovered/Resolved]
  - Impetigo [Recovered/Resolved]
  - Nasopharyngitis [Recovered/Resolved]
  - Abdominal distension [Recovered/Resolved]
  - Oedema [Recovered/Resolved]

NARRATIVE: CASE EVENT DATE: 20200910
